FAERS Safety Report 13452649 (Version 4)
Quarter: 2017Q2

REPORT INFORMATION
  Report Type: Spontaneous
  Country: US (occurrence: US)
  Receive Date: 20170418
  Receipt Date: 20170531
  Transmission Date: 20170830
  Serious: Yes (Other)
  Sender: FDA-Public Use
  Company Number: US-GLAXOSMITHKLINE-US2017GSK053338

PATIENT
  Sex: Female

DRUGS (1)
  1. VENTOLIN HFA [Suspect]
     Active Substance: ALBUTEROL SULFATE
     Indication: ASTHMA

REACTIONS (11)
  - Discomfort [Unknown]
  - Anxiety [Unknown]
  - Ill-defined disorder [Unknown]
  - Product quality issue [Unknown]
  - Breast cancer [Unknown]
  - Asthma [Unknown]
  - Condition aggravated [Unknown]
  - Drug ineffective [Unknown]
  - Dyspnoea [Unknown]
  - Drug dispensing error [Unknown]
  - Product use issue [Unknown]
